FAERS Safety Report 20316581 (Version 2)
Quarter: 2022Q1

REPORT INFORMATION
  Report Type: Spontaneous
  Country: None (occurrence: US)
  Receive Date: 20220110
  Receipt Date: 20220215
  Transmission Date: 20220423
  Serious: Yes (Other)
  Sender: FDA-Public Use
  Company Number: US-Ajanta Pharma USA Inc.-2123761

PATIENT
  Age: 87 Year
  Sex: Male
  Weight: 83.636 kg

DRUGS (4)
  1. SILODOSIN [Suspect]
     Active Substance: SILODOSIN
     Indication: Benign prostatic hyperplasia
     Dates: start: 20210808, end: 20211227
  2. WARFARIN SODIUM [Concomitant]
     Active Substance: WARFARIN SODIUM
  3. MYRBETRIQ [Concomitant]
     Active Substance: MIRABEGRON
  4. OMEPRAZOLE [Concomitant]
     Active Substance: OMEPRAZOLE

REACTIONS (12)
  - Cataract [Not Recovered/Not Resolved]
  - Glomerular filtration rate decreased [Unknown]
  - Carbon dioxide increased [Unknown]
  - Anion gap decreased [Unknown]
  - Glycosylated haemoglobin increased [Unknown]
  - Blood uric acid increased [Unknown]
  - Food craving [Recovering/Resolving]
  - Blood glucose increased [Not Recovered/Not Resolved]
  - Respiratory tract congestion [Recovered/Resolved]
  - Dyspnoea exertional [Not Recovered/Not Resolved]
  - Off label use [Recovered/Resolved]
  - Oxygen saturation decreased [Recovered/Resolved]

NARRATIVE: CASE EVENT DATE: 20210101
